FAERS Safety Report 5337297-X (Version None)
Quarter: 2007Q2

REPORT INFORMATION
  Report Type: 
  Country: None (occurrence: None)
  Receive Date: 20070529
  Receipt Date: 20070517
  Transmission Date: 20071010
  Serious: Yes (Other)
  Sender: FDA-Public Use
  Company Number: PT-PFIZER INC-2007040309

PATIENT
  Age: 54 Year
  Sex: Male

DRUGS (2)
  1. CHAMPIX [Suspect]
     Indication: SMOKING CESSATION THERAPY
     Route: 048
  2. STATINS [Concomitant]

REACTIONS (4)
  - EPILEPSY [None]
  - INSOMNIA [None]
  - MALAISE [None]
  - MYALGIA [None]
